FAERS Safety Report 13737998 (Version 1)
Quarter: 2017Q3

REPORT INFORMATION
  Report Type: Spontaneous
  Country: AU (occurrence: AU)
  Receive Date: 20170710
  Receipt Date: 20170710
  Transmission Date: 20171127
  Serious: Yes (Other)
  Sender: FDA-Public Use
  Company Number: AU-SA-2017SA119215

PATIENT
  Age: 39 Year
  Sex: Female

DRUGS (1)
  1. LEMTRADA [Suspect]
     Active Substance: ALEMTUZUMAB
     Route: 041

REACTIONS (6)
  - Cough [Unknown]
  - Exposure during pregnancy [Unknown]
  - Thrombocytopenia [Recovered/Resolved]
  - Hyperthyroidism [Unknown]
  - Oedema peripheral [Unknown]
  - Pulmonary hypertension [Unknown]
